FAERS Safety Report 7474846-X (Version None)
Quarter: 2011Q2

REPORT INFORMATION
  Report Type: 
  Country: None (occurrence: None)
  Receive Date: 20110512
  Receipt Date: 20110418
  Transmission Date: 20111010
  Serious: Yes (Life-Threatening, Other)
  Sender: FDA-Public Use
  Company Number: US-BAYER-201029786NA

PATIENT
  Age: 28 Year
  Sex: Female
  Weight: 61.224 kg

DRUGS (2)
  1. YASMIN [Suspect]
     Indication: PRODUCT USED FOR UNKNOWN INDICATION
     Dosage: UNK
     Dates: start: 20071201, end: 20080501
  2. OMEPRAZOLE [Concomitant]
     Indication: FLATULENCE
     Dosage: UNK
     Dates: start: 20080101

REACTIONS (6)
  - CHOLELITHIASIS [None]
  - UNEVALUABLE EVENT [None]
  - GALLBLADDER DISORDER [None]
  - CHOLECYSTITIS [None]
  - LIVER INJURY [None]
  - INJURY [None]
